FAERS Safety Report 18179999 (Version 2)
Quarter: 2020Q3

REPORT INFORMATION
  Report Type: Spontaneous
  Country: US (occurrence: US)
  Receive Date: 20200821
  Receipt Date: 20200827
  Transmission Date: 20201103
  Serious: Yes (Hospitalization, Other)
  Sender: FDA-Public Use
  Company Number: US-ASTRAZENECA-2020SF03244

PATIENT
  Age: 31228 Day
  Sex: Female
  Weight: 68 kg

DRUGS (2)
  1. SUPPLEMENTAL OXYGEN [Concomitant]
     Active Substance: OXYGEN
  2. SYMBICORT [Suspect]
     Active Substance: BUDESONIDE\FORMOTEROL FUMARATE DIHYDRATE
     Dosage: 160/4.5 MCG, 2 INHALATIONS TWO TIMES A DAY
     Route: 055

REACTIONS (4)
  - Suspected COVID-19 [Unknown]
  - Product dose omission issue [Unknown]
  - Device issue [Unknown]
  - Fall [Unknown]

NARRATIVE: CASE EVENT DATE: 20200731
